FAERS Safety Report 7960371-6 (Version None)
Quarter: 2011Q4

REPORT INFORMATION
  Report Type: 
  Country: None (occurrence: None)
  Receive Date: 20111206
  Receipt Date: 20111202
  Transmission Date: 20120403
  Serious: Yes (Death)
  Sender: FDA-Public Use
  Company Number: NO-ROCHE-1018312

PATIENT
  Age: 74 Year
  Sex: Male

DRUGS (4)
  1. FLUOROURACIL [Concomitant]
  2. IRINOTECAN HCL [Concomitant]
  3. AVASTIN [Suspect]
     Indication: PRODUCT USED FOR UNKNOWN INDICATION
     Route: 042
     Dates: end: 20110713
  4. FOLIC ACID [Concomitant]

REACTIONS (2)
  - HYPERTENSION [None]
  - CEREBRAL HAEMORRHAGE [None]
